FAERS Safety Report 11927594 (Version 2)
Quarter: 2016Q3

REPORT INFORMATION
  Report Type: Spontaneous
  Country: US (occurrence: US)
  Receive Date: 20160119
  Receipt Date: 20160916
  Transmission Date: 20161109
  Serious: Yes (Hospitalization, Other)
  Sender: FDA-Public Use
  Company Number: US-PFIZER INC-2016018345

PATIENT
  Age: 69 Year
  Sex: Male
  Weight: 64.63 kg

DRUGS (1)
  1. RAPAMUNE [Suspect]
     Active Substance: SIROLIMUS
     Indication: PROPHYLAXIS AGAINST TRANSPLANT REJECTION
     Dosage: 3 PILLS, DAILY

REACTIONS (4)
  - Pancreatitis [Recovered/Resolved]
  - Pneumonia [Recovered/Resolved]
  - Sarcoidosis [Unknown]
  - Product use issue [Unknown]

NARRATIVE: CASE EVENT DATE: 201512
